FAERS Safety Report 5250092-5 (Version None)
Quarter: 2007Q1

REPORT INFORMATION
  Report Type: 
  Country: None (occurrence: None)
  Receive Date: 20070228
  Receipt Date: 20060203
  Transmission Date: 20070707
  Serious: Yes (Disabling)
  Sender: FDA-Public Use
  Company Number: US-GLAXOSMITHKLINE-A0592271A

PATIENT
  Age: 50 Year
  Sex: Male

DRUGS (5)
  1. LAMICTAL [Suspect]
     Indication: BIPOLAR DISORDER
     Dosage: 50MG PER DAY
     Route: 048
     Dates: start: 20060111, end: 20060120
  2. SEROQUEL [Concomitant]
  3. HYDROCHLOROTHIAZIDE [Concomitant]
  4. POTASSIUM ACETATE [Concomitant]
  5. LIPITOR [Concomitant]

REACTIONS (4)
  - CHILLS [None]
  - COUGH [None]
  - NAUSEA [None]
  - PYREXIA [None]
